FAERS Safety Report 8276549-0 (Version None)
Quarter: 2012Q2

REPORT INFORMATION
  Report Type: 
  Country: None (occurrence: None)
  Receive Date: 20120406
  Receipt Date: 20120330
  Transmission Date: 20120825
  Serious: Yes (Hospitalization)
  Sender: FDA-Public Use
  Company Number: 2012SP017374

PATIENT
  Age: 69 Year
  Sex: Female
  Weight: 47 kg

DRUGS (4)
  1. TELAVIC (ANTIVIRALS NOS) [Suspect]
     Indication: HEPATITIS C
     Dosage: 1500 MG;QD;PO
     Route: 048
     Dates: start: 20120117, end: 20120205
  2. REBETOL [Suspect]
     Indication: HEPATITIS C
     Dosage: 600 MG;QD;PO ;200 MG;QD;PO
     Route: 048
     Dates: start: 20120117, end: 20120126
  3. REBETOL [Suspect]
     Indication: HEPATITIS C
     Dosage: 600 MG;QD;PO ;200 MG;QD;PO
     Route: 048
     Dates: start: 20120127, end: 20120205
  4. PEG-INTRON [Suspect]
     Indication: HEPATITIS C
     Dosage: 80 MCG;QW;SC
     Route: 058
     Dates: start: 20120117, end: 20120201

REACTIONS (5)
  - INFLAMMATION [None]
  - ANAEMIA [None]
  - RENAL TUBULAR NECROSIS [None]
  - RENAL DISORDER [None]
  - BLOOD URIC ACID INCREASED [None]
